FAERS Safety Report 7631659-3 (Version None)
Quarter: 2011Q3

REPORT INFORMATION
  Report Type: 
  Country: None (occurrence: None)
  Receive Date: 20110725
  Receipt Date: 20110208
  Transmission Date: 20111222
  Serious: No
  Sender: FDA-Public Use
  Company Number: US-BRISTOL-MYERS SQUIBB COMPANY-15536824

PATIENT
  Age: 55 Year
  Sex: Male
  Weight: 87 kg

DRUGS (6)
  1. DILTIAZEM HCL [Concomitant]
  2. WELLBUTRIN [Concomitant]
  3. LISINOPRIL [Concomitant]
  4. NEURONTIN [Concomitant]
  5. WARFARIN SODIUM [Suspect]
     Indication: AORTIC VALVE REPLACEMENT
     Dosage: DURATION OF THERAPY:3-4 WEEKS
     Dates: start: 19991214
  6. METHYLDOPA [Concomitant]

REACTIONS (1)
  - DRUG INEFFECTIVE [None]
